FAERS Safety Report 10710194 (Version 1)
Quarter: 2015Q1

REPORT INFORMATION
  Report Type: Spontaneous
  Country: TR (occurrence: None)
  Receive Date: 20150112
  Receipt Date: 20150112
  Transmission Date: 20150721
  Serious: Yes (Life-Threatening)
  Sender: FDA-Public Use
  Company Number: LOC-01288

PATIENT
  Age: 40 Year
  Sex: Female

DRUGS (2)
  1. EXCIPIAL LIPO EMULSION (UREA) [Concomitant]
  2. LOCOID [Suspect]
     Active Substance: HYDROCORTISONE BUTYRATE
     Indication: LICHEN PLANUS
     Route: 061
     Dates: start: 20141216, end: 20141216

REACTIONS (3)
  - Blood pressure decreased [None]
  - Shock [None]
  - Syncope [None]

NARRATIVE: CASE EVENT DATE: 20141216
